FAERS Safety Report 20641941 (Version 1)
Quarter: 2022Q1

REPORT INFORMATION
  Report Type: Spontaneous
  Country: SI (occurrence: SI)
  Receive Date: 20220328
  Receipt Date: 20220328
  Transmission Date: 20220423
  Serious: Yes (Other)
  Sender: FDA-Public Use
  Company Number: SI-KYOWAKIRIN-2022BKK003937

PATIENT

DRUGS (1)
  1. POTELIGEO [Suspect]
     Active Substance: MOGAMULIZUMAB-KPKC
     Indication: Cutaneous T-cell lymphoma
     Dosage: 1 MG/KG
     Route: 065
     Dates: start: 202106, end: 202201

REACTIONS (2)
  - Cutaneous T-cell lymphoma [Unknown]
  - Disease progression [Unknown]
